FAERS Safety Report 16835094 (Version 1)
Quarter: 2019Q3

REPORT INFORMATION
  Report Type: Spontaneous
  Country: US (occurrence: US)
  Receive Date: 20190920
  Receipt Date: 20190920
  Transmission Date: 20191005
  Serious: No
  Sender: FDA-Public Use
  Company Number: US-SA-2019SA257728

PATIENT
  Age: 43 Year
  Sex: Female

DRUGS (18)
  1. CEFDINIR. [Concomitant]
     Active Substance: CEFDINIR
  2. CLOBETASOL [Concomitant]
     Active Substance: CLOBETASOL
  3. HALOBETASOL [Concomitant]
     Active Substance: HALOBETASOL PROPIONATE
  4. HYDOCOMIN [Concomitant]
  5. VALACYCLOVIR [Concomitant]
     Active Substance: VALACYCLOVIR HYDROCHLORIDE
  6. CLONAZEPAM. [Concomitant]
     Active Substance: CLONAZEPAM
  7. FERROUS [IRON] [Concomitant]
  8. ULTRAVATE [ULOBETASOL PROPIONATE] [Concomitant]
  9. FLUOXETINE [Concomitant]
     Active Substance: FLUOXETINE HYDROCHLORIDE
  10. TACROLIMUS. [Concomitant]
     Active Substance: TACROLIMUS
  11. DUPIXENT [Suspect]
     Active Substance: DUPILUMAB
     Dosage: 300 MG, QOW
     Route: 058
     Dates: start: 2019
  12. SUMATRIPTAN. [Concomitant]
     Active Substance: SUMATRIPTAN
  13. TEMOVATE [Concomitant]
     Active Substance: CLOBETASOL PROPIONATE
  14. DUPIXENT [Suspect]
     Active Substance: DUPILUMAB
     Indication: DERMATITIS ATOPIC
     Dosage: 600 MG, 1X
     Route: 058
     Dates: start: 20190831, end: 20190831
  15. BACTROBAN [Concomitant]
     Active Substance: MUPIROCIN\MUPIROCIN CALCIUM
  16. FLUCONAZOLE. [Concomitant]
     Active Substance: FLUCONAZOLE
  17. HYDROXYZINE [Concomitant]
     Active Substance: HYDROXYZINE HYDROCHLORIDE
  18. SYNTHROID [Concomitant]
     Active Substance: LEVOTHYROXINE SODIUM

REACTIONS (1)
  - Dermatitis atopic [Not Recovered/Not Resolved]
